FAERS Safety Report 5397033-8 (Version None)
Quarter: 2007Q3

REPORT INFORMATION
  Report Type: 
  Country: None (occurrence: None)
  Receive Date: 20070725
  Receipt Date: 20070710
  Transmission Date: 20080115
  Serious: Yes (Hospitalization)
  Sender: FDA-Public Use
  Company Number: IT-GENENTECH-244362

PATIENT
  Sex: Male

DRUGS (6)
  1. AVASTIN [Suspect]
     Indication: DRUG USE FOR UNKNOWN INDICATION
     Dosage: 350 MG, UNK
     Route: 042
     Dates: start: 20061206
  2. FLUOROURACIL [Suspect]
     Indication: CHEMOTHERAPY
     Dosage: 3560 MG, UNK
     Route: 042
     Dates: start: 20060604
  3. CALCIUM FOLINATE [Suspect]
     Indication: CHEMOTHERAPY
  4. LANSOPRAZOLE [Concomitant]
     Indication: DRUG USE FOR UNKNOWN INDICATION
  5. URSODIOL [Concomitant]
     Indication: DRUG USE FOR UNKNOWN INDICATION
  6. ZOFRAN [Concomitant]
     Indication: DRUG USE FOR UNKNOWN INDICATION

REACTIONS (2)
  - ABDOMINAL PAIN [None]
  - JAUNDICE [None]
